FAERS Safety Report 8928036 (Version 1)
Quarter: 2012Q4

REPORT INFORMATION
  Report Type: Spontaneous
  Country: GB (occurrence: None)
  Receive Date: 20121119
  Receipt Date: 20121119
  Transmission Date: 20130627
  Serious: Yes (Hospitalization)
  Sender: FDA-Public Use
  Company Number: ACET20120026

PATIENT
  Age: 20 Year
  Sex: Female

DRUGS (2)
  1. Q-PAP TABLETS 325MG (PARACETAMOL) (TABLETS) [Suspect]
     Indication: OVERDOSE
     Route: 048
     Dates: start: 201108, end: 201108
  2. Q-PAP TABLETS 325MG (PARACETAMOL) (TABLETS) [Suspect]
     Route: 048
     Dates: start: 201108, end: 201108

REACTIONS (6)
  - Overdose [None]
  - Blood pH decreased [None]
  - Diabetic ketoacidosis [None]
  - Hypoglycaemia [None]
  - Hyperglycaemia [None]
  - Metabolic acidosis [None]
